FAERS Safety Report 6580527-7 (Version None)
Quarter: 2010Q1

REPORT INFORMATION
  Report Type: 
  Country: None (occurrence: None)
  Receive Date: 20100212
  Receipt Date: 20100202
  Transmission Date: 20100710
  Serious: Yes (Other)
  Sender: FDA-Public Use
  Company Number: BR-ABBOTT-10P-020-0623700-00

PATIENT
  Age: 19 Year
  Sex: Male

DRUGS (6)
  1. VALPAKINE [Suspect]
     Indication: CONVULSION
     Route: 048
     Dates: start: 20000101, end: 20100121
  2. VALPAKINE [Suspect]
     Route: 048
     Dates: start: 20100122, end: 20100125
  3. VALPAKINE [Suspect]
     Route: 048
     Dates: start: 20100126
  4. BROMOPRIDE [Concomitant]
     Indication: DRUG USE FOR UNKNOWN INDICATION
     Dates: start: 20060101
  5. FRISIUM [Concomitant]
     Indication: DRUG USE FOR UNKNOWN INDICATION
     Dates: start: 20010101
  6. OMEPRAZOLE [Concomitant]
     Indication: DRUG USE FOR UNKNOWN INDICATION
     Dates: start: 20050101

REACTIONS (6)
  - CONVULSION [None]
  - DRUG INEFFECTIVE [None]
  - INAPPROPRIATE AFFECT [None]
  - INSOMNIA [None]
  - PRODUCT ODOUR ABNORMAL [None]
  - PRODUCT QUALITY ISSUE [None]
